FAERS Safety Report 8991879 (Version 1)
Quarter: 2012Q4

REPORT INFORMATION
  Report Type: 
  Country: IN (occurrence: IN)
  Receive Date: 20121231
  Receipt Date: 20121231
  Transmission Date: 20130627
  Serious: Yes (Death)
  Sender: FDA-Public Use
  Company Number: IN-ROCHE-1175860

PATIENT
  Sex: Male

DRUGS (1)
  1. ALTEPLASE [Suspect]
     Indication: HAEMORRHAGIC STROKE
     Route: 050
     Dates: start: 201005, end: 201005

REACTIONS (1)
  - Death [Fatal]
